FAERS Safety Report 10440828 (Version 1)
Quarter: 2014Q3

REPORT INFORMATION
  Report Type: Spontaneous
  Country: US (occurrence: None)
  Receive Date: 20140905
  Receipt Date: 20140905
  Transmission Date: 20150326
  Serious: Yes (Other)
  Sender: FDA-Public Use
  Company Number: None

PATIENT
  Age: 74 Year
  Sex: Female
  Weight: 57.15 kg

DRUGS (1)
  1. DICLOXACILLIN 500MG [Suspect]
     Active Substance: DICLOXACILLIN
     Indication: MASTITIS
     Route: 048
     Dates: start: 20140822, end: 20140831

REACTIONS (4)
  - Urinary bladder haemorrhage [None]
  - Bladder irritation [None]
  - Gastric disorder [None]
  - Urethritis noninfective [None]

NARRATIVE: CASE EVENT DATE: 20140904
